FAERS Safety Report 10005864 (Version 2)
Quarter: 2014Q1

REPORT INFORMATION
  Report Type: Report from Study
  Country: US (occurrence: US)
  Receive Date: 20140313
  Receipt Date: 20140313
  Transmission Date: 20141002
  Serious: Yes (Other)
  Sender: FDA-Public Use
  Company Number: US-ROCHE-1321746

PATIENT
  Age: 85 Year
  Sex: Female
  Weight: 43.58 kg

DRUGS (2)
  1. ERIVEDGE [Suspect]
     Indication: BASAL CELL CARCINOMA
     Route: 048
     Dates: start: 20131209, end: 20140109
  2. ERIVEDGE [Suspect]
     Route: 048

REACTIONS (5)
  - Presyncope [Recovered/Resolved]
  - Muscle spasms [Recovered/Resolved]
  - Nausea [Recovered/Resolved]
  - Fatigue [Recovered/Resolved]
  - Breast pain [Not Recovered/Not Resolved]
